FAERS Safety Report 20649806 (Version 1)
Quarter: 2022Q1

REPORT INFORMATION
  Report Type: Report from Study
  Country: CN (occurrence: CN)
  Receive Date: 20220329
  Receipt Date: 20220329
  Transmission Date: 20220424
  Serious: Yes (Death, Hospitalization, Other)
  Sender: FDA-Public Use
  Company Number: CN-BRISTOL-MYERS SQUIBB COMPANY-BMS-2022-040138

PATIENT
  Age: 61 Year
  Sex: Male
  Weight: 44 kg

DRUGS (27)
  1. CARBOPLATIN [Suspect]
     Active Substance: CARBOPLATIN
     Indication: Non-small cell lung cancer
     Dosage: LAST DOSE (161 MG) ON 01-MAR-2022
     Route: 065
     Dates: start: 20211221
  2. PACLITAXEL [Suspect]
     Active Substance: PACLITAXEL
     Indication: Non-small cell lung cancer
     Dosage: LAST DOSE (63 MG) ON 01-MAR-2022
     Route: 065
     Dates: start: 20211221
  3. NIVOLUMAB\RELATLIMAB-RMBW [Suspect]
     Active Substance: NIVOLUMAB\RELATLIMAB-RMBW
     Indication: Non-small cell lung cancer
     Dosage: LAST DOSE ON 15-FEB-2022
     Route: 042
     Dates: start: 20211221
  4. PREDNISONE ACETATE [Concomitant]
     Active Substance: PREDNISONE ACETATE
     Indication: Product used for unknown indication
     Dosage: 10 MILLIGRAM, QD
     Route: 048
     Dates: start: 20220208
  5. CEFDINIR [Concomitant]
     Active Substance: CEFDINIR
     Indication: Product used for unknown indication
     Dosage: 100 MILLIGRAM, TID
     Route: 048
     Dates: start: 20220128
  6. BIAN NAI TONG [Concomitant]
     Indication: Product used for unknown indication
     Dosage: 2.8 GRAM, BID
     Route: 048
     Dates: start: 20211217
  7. MOXIFLOXACIN HYDROCHLORIDE [Concomitant]
     Active Substance: MOXIFLOXACIN HYDROCHLORIDE
     Indication: Product used for unknown indication
     Route: 042
     Dates: start: 20220313
  8. DEXAMETHASONE SODIUM PHOSPHATE [Concomitant]
     Active Substance: DEXAMETHASONE SODIUM PHOSPHATE
     Indication: Product used for unknown indication
     Route: 050
     Dates: start: 20220224, end: 20220227
  9. DICLOFENAC SODIUM AND LIDOCAINE HYDROCHLORIDE [Concomitant]
     Indication: Product used for unknown indication
     Dosage: 0.1 GRAM, QD
     Route: 042
     Dates: start: 20220224, end: 20220227
  10. METHYLPREDNISOLONE SODIUM SUCCINATE [Concomitant]
     Active Substance: METHYLPREDNISOLONE SODIUM SUCCINATE
     Indication: Product used for unknown indication
     Dosage: 30 MILLIGRAM, QD
     Route: 042
     Dates: start: 20220224, end: 20220227
  11. ESOMEPRAZOLE SODIUM [Concomitant]
     Active Substance: ESOMEPRAZOLE SODIUM
     Indication: Product used for unknown indication
     Route: 042
     Dates: start: 20220225, end: 20220227
  12. YUN NAN BAI YAO [ACONITUM KUSNEZOFFII ROOT TUBER;ACONITUM SPP. ROOT TU [Concomitant]
     Indication: Product used for unknown indication
     Dosage: 1 DOSAGE FORM= 1 UNIT NOS, TID
     Route: 048
     Dates: start: 20211214
  13. GASTROPYLOR COMPLEX [Concomitant]
     Indication: Nausea
     Route: 048
     Dates: start: 20220309, end: 20220311
  14. ESTAZOLAM [Concomitant]
     Active Substance: ESTAZOLAM
     Indication: Product used for unknown indication
     Dosage: 1 MILLIGRAM, QD
     Route: 048
     Dates: start: 20220115
  15. RABEPRAZOLE SODIUM [Concomitant]
     Active Substance: RABEPRAZOLE SODIUM
     Indication: Product used for unknown indication
     Dosage: 10 MILLIGRAM, QD
     Route: 048
     Dates: start: 20220119
  16. DEXAMETHASONE ACETATE [Concomitant]
     Active Substance: DEXAMETHASONE ACETATE
     Indication: Product used for unknown indication
     Dosage: 20 MILLIGRAM
     Route: 048
     Dates: start: 20220228, end: 20220301
  17. OMEPRAZOLE SODIUM [Concomitant]
     Active Substance: OMEPRAZOLE SODIUM
     Indication: Product used for unknown indication
     Route: 042
     Dates: start: 20220301, end: 20220302
  18. PALONOSETRON HYDROCHLORIDE [Concomitant]
     Active Substance: PALONOSETRON HYDROCHLORIDE
     Indication: Product used for unknown indication
     Dosage: 0.3 MILLIGRAM
     Route: 042
     Dates: start: 20220301, end: 20220302
  19. NICOTINAMIDE [Concomitant]
     Active Substance: NIACINAMIDE
     Indication: Product used for unknown indication
     Dosage: 0.3 GRAM
     Route: 042
     Dates: start: 20220301, end: 20220302
  20. MAGNESIUM ISOGLYCYRRHIZINATE [Concomitant]
     Active Substance: MAGNESIUM ISOGLYCYRRHIZINATE
     Indication: Product used for unknown indication
     Dosage: 150 MILLIGRAM
     Route: 042
     Dates: start: 20220301, end: 20220302
  21. METHIONINE AND VITAMIN B1 [Concomitant]
     Indication: Product used for unknown indication
     Dosage: 220 MILLIGRAM
     Route: 042
     Dates: start: 20220301, end: 20220302
  22. DOLASETRON MESYLATE [Concomitant]
     Active Substance: DOLASETRON MESYLATE
     Indication: Product used for unknown indication
     Dosage: 87.5 MILLIGRAM
     Route: 042
     Dates: start: 20220301, end: 20220302
  23. OXYCODONE HYDROCHLORIDE [Concomitant]
     Active Substance: OXYCODONE HYDROCHLORIDE
     Indication: Product used for unknown indication
     Route: 048
     Dates: start: 20220127
  24. OXYCODONE HYDROCHLORIDE [Concomitant]
     Active Substance: OXYCODONE HYDROCHLORIDE
     Route: 048
     Dates: start: 20220118
  25. SHENG XUE BAO [Concomitant]
     Indication: Product used for unknown indication
     Route: 048
     Dates: start: 20220309, end: 20220311
  26. CEFACLOR [Concomitant]
     Active Substance: CEFACLOR
     Indication: Product used for unknown indication
     Route: 048
     Dates: start: 20220309, end: 20220311
  27. CISAPRIDE [Concomitant]
     Active Substance: CISAPRIDE
     Indication: Product used for unknown indication
     Route: 048
     Dates: start: 20220309, end: 20220311

REACTIONS (1)
  - Pneumonia [Fatal]

NARRATIVE: CASE EVENT DATE: 20220313
